FAERS Safety Report 13728871 (Version 1)
Quarter: 2017Q3

REPORT INFORMATION
  Report Type: Spontaneous
  Country: FR (occurrence: FR)
  Receive Date: 20170707
  Receipt Date: 20170707
  Transmission Date: 20171127
  Serious: Yes (Other)
  Sender: FDA-Public Use
  Company Number: FR-ROCHE-1960195

PATIENT
  Age: 66 Year
  Sex: Female

DRUGS (12)
  1. DOCETAXEL. [Suspect]
     Active Substance: DOCETAXEL
     Indication: INVASIVE DUCTAL BREAST CARCINOMA
     Route: 042
     Dates: start: 20121204, end: 20121204
  2. HERCEPTIN [Suspect]
     Active Substance: TRASTUZUMAB
     Dosage: CYCLE 2
     Route: 042
     Dates: start: 20130111
  3. EPIRUBICIN [Concomitant]
     Active Substance: EPIRUBICIN
     Dosage: CYCLE 3
     Route: 065
     Dates: start: 20121109
  4. HERCEPTIN [Suspect]
     Active Substance: TRASTUZUMAB
     Indication: INVASIVE DUCTAL BREAST CARCINOMA
     Route: 042
     Dates: start: 20121203, end: 20130920
  5. 5-FU [Concomitant]
     Active Substance: FLUOROURACIL
     Dosage: CYCLE 1
     Route: 065
     Dates: start: 20120928
  6. EPIRUBICIN [Concomitant]
     Active Substance: EPIRUBICIN
     Dosage: CYCLE 1
     Route: 065
     Dates: start: 20120928
  7. EPIRUBICIN [Concomitant]
     Active Substance: EPIRUBICIN
     Dosage: CYCLE 2
     Route: 065
     Dates: start: 20121019
  8. 5-FU [Concomitant]
     Active Substance: FLUOROURACIL
     Dosage: CYCLE 2
     Route: 065
     Dates: start: 20121019
  9. 5-FU [Concomitant]
     Active Substance: FLUOROURACIL
     Route: 065
     Dates: start: 20121109
  10. CYCLOPHOSPHAMIDE. [Concomitant]
     Active Substance: CYCLOPHOSPHAMIDE
     Dosage: CYCLE 2
     Route: 065
     Dates: start: 20121019
  11. CYCLOPHOSPHAMIDE. [Concomitant]
     Active Substance: CYCLOPHOSPHAMIDE
     Dosage: CYCLE 3
     Route: 065
     Dates: start: 20121109
  12. CYCLOPHOSPHAMIDE. [Concomitant]
     Active Substance: CYCLOPHOSPHAMIDE
     Dosage: CYCLE 1
     Route: 065
     Dates: start: 20120928

REACTIONS (1)
  - Palmar-plantar erythrodysaesthesia syndrome [Unknown]

NARRATIVE: CASE EVENT DATE: 20121228
